FAERS Safety Report 9345128 (Version 1)
Quarter: 2013Q2

REPORT INFORMATION
  Report Type: Spontaneous
  Country: SE (occurrence: SE)
  Receive Date: 20130612
  Receipt Date: 20130612
  Transmission Date: 20140414
  Serious: Yes (Hospitalization)
  Sender: FDA-Public Use
  Company Number: SE-BAXTER-2013BAX020920

PATIENT
  Sex: Female

DRUGS (7)
  1. SENDOXAN 1000 MG PULVER TILL INJEKTIONSV?TSKA, L?SNING [Suspect]
     Indication: LYMPHOMA
     Route: 065
  2. ONCOVIN [Suspect]
     Indication: LYMPHOMA
     Route: 065
  3. DOXORUBICIN TEVA [Suspect]
     Indication: LYMPHOMA
     Route: 065
  4. MABTHERA [Suspect]
     Indication: LYMPHOMA
     Route: 065
  5. OMEPRAZOLE [Concomitant]
     Indication: PRODUCT USED FOR UNKNOWN INDICATION
     Route: 065
  6. CIPROFLOXACIN [Concomitant]
     Indication: PRODUCT USED FOR UNKNOWN INDICATION
     Route: 065
  7. ALVEDON [Concomitant]
     Indication: PRODUCT USED FOR UNKNOWN INDICATION
     Route: 065

REACTIONS (5)
  - Pyrexia [Recovered/Resolved]
  - Chills [Unknown]
  - Neutropenia [Unknown]
  - Rhinitis [Unknown]
  - Cough [Unknown]
